FAERS Safety Report 22534633 (Version 1)
Quarter: 2023Q2

REPORT INFORMATION
  Report Type: Spontaneous
  Country: ES (occurrence: ES)
  Receive Date: 20230608
  Receipt Date: 20230608
  Transmission Date: 20230721
  Serious: Yes (Hospitalization, Other)
  Sender: FDA-Public Use
  Company Number: ES-TAKEDA-2023TUS055081

PATIENT
  Age: 57 Year
  Sex: Female

DRUGS (3)
  1. ALOGLIPTIN BENZOATE\METFORMIN HYDROCHLORIDE [Suspect]
     Active Substance: ALOGLIPTIN BENZOATE\METFORMIN HYDROCHLORIDE
     Indication: Type 2 diabetes mellitus
     Dosage: UNK, Q12H
     Route: 048
     Dates: start: 20230227, end: 20230428
  2. CALCIFEDIOL [Suspect]
     Active Substance: CALCIFEDIOL
     Dosage: UNK
  3. LORAZEPAM [Suspect]
     Active Substance: LORAZEPAM
     Dosage: UNK, QD

REACTIONS (1)
  - Tubulointerstitial nephritis [Unknown]
